FAERS Safety Report 12227024 (Version 1)
Quarter: 2016Q1

REPORT INFORMATION
  Report Type: Spontaneous
  Country: FR (occurrence: FR)
  Receive Date: 20160331
  Receipt Date: 20160331
  Transmission Date: 20160526
  Serious: Yes (Life-Threatening, Other)
  Sender: FDA-Public Use
  Company Number: FR-BAXTER-2016BAX015966

PATIENT
  Age: 40 Year
  Sex: Female

DRUGS (4)
  1. TAXOTERE [Suspect]
     Active Substance: DOCETAXEL
     Indication: INVASIVE DUCTAL BREAST CARCINOMA
     Dosage: FIRST CYCLE OF NEOADJUVANT CHEMOTHERAPY
     Route: 042
     Dates: start: 20160115, end: 20160115
  2. G-CSF [Concomitant]
     Active Substance: GRANULOCYTE COLONY-STIMULATING FACTOR NOS
     Indication: PRODUCT USED FOR UNKNOWN INDICATION
     Route: 065
     Dates: start: 20160118
  3. ENDOXAN 1000 MG, POUDRE POUR SOLUTION INJECTABLE [Suspect]
     Active Substance: CYCLOPHOSPHAMIDE
     Indication: INVASIVE DUCTAL BREAST CARCINOMA
     Dosage: FIRST CYCLE OF NEOADJUVANT CHEMOTHERAPY
     Route: 042
     Dates: start: 20160115, end: 20160115
  4. EPIRUBICIN [Suspect]
     Active Substance: EPIRUBICIN
     Indication: INVASIVE DUCTAL BREAST CARCINOMA
     Dosage: FIRST CYCLE OF NEOADJUVANT CHEMOTHERAPY
     Route: 042
     Dates: start: 20160115, end: 20160115

REACTIONS (11)
  - Mesenteric vein thrombosis [Recovered/Resolved]
  - Disseminated intravascular coagulation [Unknown]
  - Pancytopenia [Recovering/Resolving]
  - Severe acute respiratory syndrome [Unknown]
  - Gastrointestinal necrosis [Unknown]
  - Acute kidney injury [Recovered/Resolved]
  - Atrial fibrillation [Unknown]
  - Renal tubular necrosis [Unknown]
  - Cardio-respiratory arrest [Unknown]
  - Septic shock [Recovered/Resolved]
  - Bradycardia [Recovered/Resolved]

NARRATIVE: CASE EVENT DATE: 20160123
